FAERS Safety Report 25998910 (Version 1)
Quarter: 2025Q4

REPORT INFORMATION
  Report Type: Spontaneous
  Country: US (occurrence: US)
  Receive Date: 20251105
  Receipt Date: 20251105
  Transmission Date: 20260117
  Serious: No
  Sender: APOTEX
  Company Number: US-APOTEX-2025AP031377

PATIENT
  Age: 62 Year
  Sex: Female

DRUGS (4)
  1. GEMCITABINE [Suspect]
     Active Substance: GEMCITABINE
     Indication: Epithelioid sarcoma metastatic
     Dosage: 1500 MILLIGRAM/SQ. METER
     Route: 065
     Dates: start: 20230829, end: 20240227
  2. GEMCITABINE [Suspect]
     Active Substance: GEMCITABINE
     Dosage: 1500 MILLIGRAM/SQ. METER
     Route: 065
     Dates: start: 20240311, end: 20240329
  3. DOCETAXEL [Suspect]
     Active Substance: DOCETAXEL
     Indication: Epithelioid sarcoma metastatic
     Dosage: 50 MILLIGRAM/SQ. METER
     Route: 065
     Dates: start: 20230829, end: 20240227
  4. DOCETAXEL [Suspect]
     Active Substance: DOCETAXEL
     Dosage: 50 MILLIGRAM/SQ. METER
     Route: 065
     Dates: start: 20240311, end: 20240329

REACTIONS (4)
  - Hyponatraemia [Unknown]
  - Performance status decreased [Recovered/Resolved]
  - Pleural effusion [Unknown]
  - Therapy partial responder [Unknown]
